FAERS Safety Report 13151413 (Version 1)
Quarter: 2017Q1

REPORT INFORMATION
  Report Type: Spontaneous
  Country: US (occurrence: US)
  Receive Date: 20170125
  Receipt Date: 20170125
  Transmission Date: 20170428
  Serious: No
  Sender: FDA-Public Use
  Company Number: None

PATIENT

DRUGS (1)
  1. DYNA-HEX [Suspect]
     Active Substance: CHLORHEXIDINE GLUCONATE
     Indication: PREOPERATIVE CARE
     Dosage: DOSE OR AMOUNT - SHAVER, PREP
     Route: 061

REACTIONS (3)
  - Burning sensation [None]
  - Erythema [None]
  - Pruritus [None]
